FAERS Safety Report 15214302 (Version 1)
Quarter: 2018Q3

REPORT INFORMATION
  Report Type: Spontaneous
  Country: US (occurrence: US)
  Receive Date: 20180702
  Receipt Date: 20180702
  Transmission Date: 20181010
  Serious: No
  Sender: FDA-Public Use
  Company Number: None

PATIENT
  Sex: Female
  Weight: 114.31 kg

DRUGS (2)
  1. OTEZLA [Suspect]
     Active Substance: APREMILAST
     Indication: PSORIATIC ARTHROPATHY
     Route: 048
     Dates: start: 201510
  2. ? BACLOFEN ORAL [Suspect]
     Active Substance: BACLOFEN
     Indication: PSORIATIC ARTHROPATHY

REACTIONS (2)
  - Sinusitis [None]
  - Ear infection [None]
